FAERS Safety Report 14334032 (Version 2)
Quarter: 2018Q1

REPORT INFORMATION
  Report Type: Spontaneous
  Country: JP (occurrence: JP)
  Receive Date: 20171228
  Receipt Date: 20180223
  Transmission Date: 20180509
  Serious: Yes (Other)
  Sender: FDA-Public Use
  Company Number: JP-PFIZER INC-2017545500

PATIENT
  Age: 23 Year
  Sex: Female

DRUGS (1)
  1. GABAPEN [Suspect]
     Active Substance: GABAPENTIN
     Dosage: UNK
     Route: 048

REACTIONS (2)
  - Gastric fistula [Unknown]
  - Dysphagia [Unknown]

NARRATIVE: CASE EVENT DATE: 20171221
